FAERS Safety Report 5405923-2 (Version None)
Quarter: 2007Q3

REPORT INFORMATION
  Report Type: 
  Country: None (occurrence: None)
  Receive Date: 20070802
  Receipt Date: 20070724
  Transmission Date: 20080115
  Serious: Yes (Other)
  Sender: FDA-Public Use
  Company Number: 2007327452

PATIENT
  Age: 63 Year
  Sex: Female
  Weight: 77.1 kg

DRUGS (2)
  1. ROGAINE [Suspect]
     Indication: ALOPECIA
     Dosage: (1 ML ) 2 TIMES A DAY (1 ML, 2 IN 1 D), TOPICAL
     Route: 061
     Dates: start: 20070712, end: 20070721
  2. CELEBREX [Concomitant]

REACTIONS (2)
  - VITREOUS DETACHMENT [None]
  - VITREOUS FLOATERS [None]
